FAERS Safety Report 13156878 (Version 1)
Quarter: 2017Q1

REPORT INFORMATION
  Report Type: Spontaneous
  Country: US (occurrence: US)
  Receive Date: 20170127
  Receipt Date: 20170127
  Transmission Date: 20170428
  Serious: No
  Sender: FDA-Public Use
  Company Number: US-ASTRAZENECA-2017SE07998

PATIENT
  Age: 62 Year
  Sex: Female

DRUGS (3)
  1. MEVACOR [Concomitant]
     Active Substance: LOVASTATIN
     Dates: start: 1987
  2. CRESTOR [Suspect]
     Active Substance: ROSUVASTATIN CALCIUM
     Dosage: UNKNOWN
     Route: 048
  3. STATINS [Concomitant]
     Active Substance: UNSPECIFIED INGREDIENT
     Dates: start: 1987

REACTIONS (5)
  - Hypertension [Unknown]
  - Tachycardia [Unknown]
  - Diabetes mellitus [Unknown]
  - Atrial fibrillation [Unknown]
  - Depression [Unknown]
